FAERS Safety Report 7125698-9 (Version None)
Quarter: 2010Q4

REPORT INFORMATION
  Report Type: 
  Country: None (occurrence: None)
  Receive Date: 20101129
  Receipt Date: 20101123
  Transmission Date: 20110411
  Serious: Yes (Hospitalization)
  Sender: FDA-Public Use
  Company Number: A0893123A

PATIENT
  Sex: Male
  Weight: 88 kg

DRUGS (7)
  1. AVANDAMET [Suspect]
     Indication: DIABETES MELLITUS
     Dosage: 1TAB TWICE PER DAY
     Route: 048
     Dates: start: 20080101, end: 20101025
  2. ALTACE [Concomitant]
     Dosage: 1G UNKNOWN
     Route: 065
     Dates: start: 20070101
  3. LIPITOR [Concomitant]
     Route: 065
     Dates: start: 20070101
  4. METFORMIN [Concomitant]
     Dosage: 1000MG UNKNOWN
     Route: 065
     Dates: start: 20070101
  5. XATRAL [Concomitant]
     Dosage: 10MG PER DAY
     Route: 065
     Dates: start: 20070101
  6. REMINYL [Concomitant]
     Route: 065
     Dates: start: 20080101
  7. PARIET [Concomitant]
     Route: 065

REACTIONS (3)
  - ATRIAL FIBRILLATION [None]
  - CARDIAC FAILURE CONGESTIVE [None]
  - OEDEMA PERIPHERAL [None]
